FAERS Safety Report 13717379 (Version 1)
Quarter: 2017Q3

REPORT INFORMATION
  Report Type: Spontaneous
  Country: US (occurrence: US)
  Receive Date: 20170705
  Receipt Date: 20170705
  Transmission Date: 20171127
  Serious: Yes (Other)
  Sender: FDA-Public Use
  Company Number: None

PATIENT
  Age: 60 Year
  Sex: Male
  Weight: 77.11 kg

DRUGS (10)
  1. ELIQUIS [Concomitant]
     Active Substance: APIXABAN
  2. SIMVASTATIN. [Concomitant]
     Active Substance: SIMVASTATIN
  3. ALPRAZOLAM. [Concomitant]
     Active Substance: ALPRAZOLAM
  4. IRBESARTAN. [Concomitant]
     Active Substance: IRBESARTAN
  5. PROBIOTIC CAPSULES [Concomitant]
     Active Substance: PROBIOTICS NOS
  6. AMOXICILLIN/CLAVULANATE 500MG [Suspect]
     Active Substance: AMOXICILLIN\CLAVULANATE POTASSIUM
     Indication: UPPER RESPIRATORY TRACT INFECTION BACTERIAL
     Route: 048
     Dates: start: 20170523, end: 20170530
  7. AMLODIPINE [Concomitant]
     Active Substance: AMLODIPINE BESYLATE
  8. CARVEDILOL. [Suspect]
     Active Substance: CARVEDILOL
  9. SENIOR MULTIVITAMIN [Concomitant]
  10. PANTOPRAZOLE [Concomitant]
     Active Substance: PANTOPRAZOLE

REACTIONS (3)
  - Clostridium difficile colitis [None]
  - Weight decreased [None]
  - Feeding disorder [None]

NARRATIVE: CASE EVENT DATE: 20170524
